FAERS Safety Report 18549867 (Version 1)
Quarter: 2020Q4

REPORT INFORMATION
  Report Type: Spontaneous
  Country: US (occurrence: US)
  Receive Date: 20201126
  Receipt Date: 20201126
  Transmission Date: 20210114
  Serious: No
  Sender: FDA-Public Use
  Company Number: US-B.I. PHARMACEUTICALS,INC./RIDGEFIELD-2020-BI-063575

PATIENT
  Age: 77 Year
  Sex: Male

DRUGS (10)
  1. ELIQUIS [Concomitant]
     Active Substance: APIXABAN
     Indication: AMYLOIDOSIS
     Dosage: 5MG DAILY
  2. LANTUS [Concomitant]
     Active Substance: INSULIN GLARGINE
     Indication: TYPE 1 DIABETES MELLITUS
     Dosage: 6 UNITS DAILY
  3. JARDIANCE [Suspect]
     Active Substance: EMPAGLIFLOZIN
     Indication: TYPE 1 DIABETES MELLITUS
     Dosage: 10MG DAILY
     Dates: start: 20201022
  4. DOXYCYCLINE. [Concomitant]
     Active Substance: DOXYCYCLINE
     Indication: AMYLOIDOSIS
     Dosage: 100MG TWICE DAILY
  5. TORSEMIDE. [Concomitant]
     Active Substance: TORSEMIDE
     Indication: AMYLOIDOSIS
     Dosage: 60MG DAILY
  6. MYCOPHENOLATE [Concomitant]
     Active Substance: MYCOPHENOLIC ACID
     Indication: TYPE 1 DIABETES MELLITUS
     Dosage: 500MG THREE TIMES DAILY
  7. PYRIDOSTIGMINE BR [Concomitant]
     Active Substance: PYRIDOSTIGMINE BROMIDE
     Indication: IMMUNOSUPPRESSION
     Dosage: 60MG THREE TIMES DAILY
  8. TUDCABIL [Concomitant]
     Indication: TYPE 1 DIABETES MELLITUS
     Dosage: 250MG THREE TIMES DAILY
  9. METFORMIN [Concomitant]
     Active Substance: METFORMIN HYDROCHLORIDE
     Indication: TYPE 1 DIABETES MELLITUS
     Dosage: 1000MG TWICE DAILY
  10. EZETIMIBE. [Concomitant]
     Active Substance: EZETIMIBE
     Indication: BLOOD CHOLESTEROL INCREASED
     Dosage: 10MG DAILY

REACTIONS (8)
  - Sleep disorder [Not Recovered/Not Resolved]
  - Weight increased [Not Recovered/Not Resolved]
  - Blood glucose increased [Not Recovered/Not Resolved]
  - Off label use [Unknown]
  - Blood glucose fluctuation [Not Recovered/Not Resolved]
  - Feeling of body temperature change [Not Recovered/Not Resolved]
  - Peripheral swelling [Not Recovered/Not Resolved]
  - Urine output decreased [Not Recovered/Not Resolved]

NARRATIVE: CASE EVENT DATE: 20201022
